FAERS Safety Report 8547810-7 (Version None)
Quarter: 2012Q3

REPORT INFORMATION
  Report Type: 
  Country: None (occurrence: None)
  Receive Date: 20120727
  Receipt Date: 20120203
  Transmission Date: 20120928
  Serious: Yes (Other)
  Sender: FDA-Public Use
  Company Number: US-ASTRAZENECA-2012SE07610

PATIENT
  Age: 64 Year
  Sex: Female
  Weight: 63 kg

DRUGS (5)
  1. SEROQUEL [Suspect]
     Indication: SLEEP DISORDER
     Route: 048
  2. SEROQUEL [Suspect]
     Indication: SCHIZOPHRENIA
     Route: 048
  3. SEROQUEL [Suspect]
     Route: 048
  4. SEROQUEL [Suspect]
     Route: 048
  5. LEVOTHYROXINE SODIUM [Concomitant]

REACTIONS (6)
  - HEART RATE DECREASED [None]
  - DIZZINESS [None]
  - FEELING ABNORMAL [None]
  - HANGOVER [None]
  - INITIAL INSOMNIA [None]
  - OFF LABEL USE [None]
